FAERS Safety Report 9565983 (Version 2)
Quarter: 2013Q4

REPORT INFORMATION
  Report Type: Spontaneous
  Country: US (occurrence: US)
  Receive Date: 20130930
  Receipt Date: 20131022
  Transmission Date: 20140711
  Serious: Yes (Other)
  Sender: FDA-Public Use
  Company Number: US-TEVA-434995USA

PATIENT
  Age: 25 Year
  Sex: Female
  Weight: 92.62 kg

DRUGS (2)
  1. PARAGARD 380A [Suspect]
     Indication: CONTRACEPTION
     Route: 015
     Dates: start: 20130502, end: 20130919
  2. ANAPROX [Concomitant]
     Dosage: PRN

REACTIONS (2)
  - Device dislocation [Recovered/Resolved]
  - Pelvic pain [Recovered/Resolved]
